FAERS Safety Report 5642903-6 (Version None)
Quarter: 2008Q1

REPORT INFORMATION
  Report Type: 
  Country: None (occurrence: None)
  Receive Date: 20080226
  Receipt Date: 20080207
  Transmission Date: 20080703
  Serious: Yes (Hospitalization)
  Sender: FDA-Public Use
  Company Number: 2008S1002354

PATIENT
  Age: 51 Year
  Sex: Male

DRUGS (1)
  1. ACYCLOVIR [Suspect]
     Indication: HERPES ZOSTER OPHTHALMIC
     Dosage: INTRAVENOUS
     Route: 042

REACTIONS (6)
  - CELLULITIS [None]
  - EXTRAVASATION [None]
  - FIBROSIS [None]
  - INFLAMMATION [None]
  - JOINT STIFFNESS [None]
  - STREPTOCOCCAL INFECTION [None]
